FAERS Safety Report 4491528-7 (Version None)
Quarter: 2004Q4

REPORT INFORMATION
  Report Type: 
  Country: None (occurrence: None)
  Receive Date: 20041101
  Receipt Date: 20041018
  Transmission Date: 20050328
  Serious: Yes (Other)
  Sender: FDA-Public Use
  Company Number: 2004045934

PATIENT
  Age: 30 Year
  Sex: Female
  Weight: 59 kg

DRUGS (3)
  1. DIFLUCAN [Suspect]
     Indication: VAGINAL CANDIDIASIS
     Dosage: 150 MG, ORAL
     Route: 048
     Dates: start: 20040101, end: 20040501
  2. MEBENDAZOLE [Suspect]
     Indication: GENITAL PRURITUS FEMALE
     Dosage: 100 MG, ORAL
     Route: 048
     Dates: start: 20040101, end: 20040621
  3. MESALAMINE [Suspect]
     Indication: COLITIS ULCERATIVE
     Dosage: ORAL
     Route: 048

REACTIONS (4)
  - ALOPECIA TOTALIS [None]
  - ANGIONEUROTIC OEDEMA [None]
  - EOSINOPHILIA [None]
  - HELMINTHIC INFECTION [None]
